FAERS Safety Report 14910529 (Version 2)
Quarter: 2018Q3

REPORT INFORMATION
  Report Type: Spontaneous
  Country: JP (occurrence: JP)
  Receive Date: 20180517
  Receipt Date: 20180807
  Transmission Date: 20181010
  Serious: Yes (Death, Life-Threatening, Hospitalization, Other)
  Sender: FDA-Public Use
  Company Number: JP-BRISTOL-MYERS SQUIBB COMPANY-BMS-2018-044496

PATIENT
  Age: 78 Year
  Sex: Male

DRUGS (4)
  1. MAINTATE [Concomitant]
     Active Substance: BISOPROLOL FUMARATE
     Indication: PRODUCT USED FOR UNKNOWN INDICATION
     Dosage: UNK
     Route: 065
     Dates: start: 20121105, end: 20180508
  2. LUSEFI [Concomitant]
     Active Substance: LUSEOGLIFLOZIN
     Indication: PRODUCT USED FOR UNKNOWN INDICATION
     Dosage: UNK
     Route: 065
     Dates: start: 20160817, end: 20180508
  3. OPDIVO [Suspect]
     Active Substance: NIVOLUMAB
     Indication: NON-SMALL CELL LUNG CANCER RECURRENT
     Dosage: 2 MG/KG, Q2WK
     Route: 041
     Dates: start: 20180409, end: 20180423
  4. URSO [Concomitant]
     Active Substance: URSODIOL
     Indication: PRODUCT USED FOR UNKNOWN INDICATION
     Dosage: UNK
     Route: 065
     Dates: end: 20180508

REACTIONS (5)
  - Myositis [Not Recovered/Not Resolved]
  - Malignant neoplasm progression [Fatal]
  - Prescribed underdose [Unknown]
  - Myasthenia gravis [Not Recovered/Not Resolved]
  - Hypopituitarism [Recovered/Resolved]

NARRATIVE: CASE EVENT DATE: 20180409
